FAERS Safety Report 6161153-0 (Version None)
Quarter: 2009Q2

REPORT INFORMATION
  Report Type: 
  Country: None (occurrence: None)
  Receive Date: 20090421
  Receipt Date: 20090409
  Transmission Date: 20091009
  Serious: Yes (Other)
  Sender: FDA-Public Use
  Company Number: US-WYE-H08902009

PATIENT
  Sex: Female
  Weight: 67.19 kg

DRUGS (10)
  1. PRISTIQ [Suspect]
     Indication: DEPRESSION
     Route: 048
     Dates: start: 20081001, end: 20090402
  2. ROSIGLITAZONE [Concomitant]
     Indication: DIABETES MELLITUS
  3. TRIAMTERENE [Suspect]
     Dosage: 75/50 MG AS NEEDED
     Dates: end: 20090101
  4. LISINOPRIL [Suspect]
     Dosage: UNKNOWN
     Dates: end: 20090101
  5. LYRICA [Concomitant]
     Indication: NEUROPATHY PERIPHERAL
  6. PREMARIN [Concomitant]
     Indication: HORMONE REPLACEMENT THERAPY
     Route: 048
  7. ACETYLSALICYLIC ACID SRT [Concomitant]
  8. ZETIA [Suspect]
     Dosage: UNKNOWN
     Dates: end: 20090101
  9. GLIMEPIRIDE [Concomitant]
     Indication: DIABETES MELLITUS
  10. METOCLOPRAMIDE [Concomitant]
     Indication: GASTRIC DISORDER

REACTIONS (2)
  - ABDOMINAL PAIN UPPER [None]
  - LIPASE INCREASED [None]
